FAERS Safety Report 6025465-3 (Version None)
Quarter: 2008Q4

REPORT INFORMATION
  Report Type: 
  Country: None (occurrence: None)
  Receive Date: 20081231
  Receipt Date: 20081218
  Transmission Date: 20090506
  Serious: Yes (Hospitalization)
  Sender: FDA-Public Use
  Company Number: FR-PFIZER INC-2008152248

PATIENT

DRUGS (13)
  1. CAMPTOSAR [Suspect]
     Indication: PANCREATIC CARCINOMA METASTATIC
     Dosage: 190 MG, CYCLIC ON DAY1 AND DAY3
     Route: 042
     Dates: start: 20081117
  2. CAMPTOSAR [Suspect]
     Dosage: UNK
  3. FLUOROURACIL [Suspect]
     Indication: PANCREATIC CARCINOMA METASTATIC
     Dosage: 2400 MG, CYCLIC ON DAY1 AND DAY2
     Route: 042
     Dates: start: 20081117
  4. CALCIUM LEVOFOLINATE [Suspect]
     Indication: PANCREATIC CARCINOMA METASTATIC
     Dosage: 370 MG, CYCLIC ON DAY1
     Dates: start: 20081117
  5. TRIVASTAL [Concomitant]
  6. MODOPAR [Concomitant]
  7. KARDEGIC [Concomitant]
  8. DIAMICRON [Concomitant]
  9. TADENAN [Concomitant]
  10. DOLIPRANE [Concomitant]
  11. NEXIUM [Concomitant]
  12. MELAXOSE [Concomitant]
  13. INDAPAMIDE [Concomitant]

REACTIONS (3)
  - DIARRHOEA [None]
  - DYSPHAGIA [None]
  - GENERAL PHYSICAL HEALTH DETERIORATION [None]
